FAERS Safety Report 18365119 (Version 1)
Quarter: 2020Q4

REPORT INFORMATION
  Report Type: Spontaneous
  Country: US (occurrence: US)
  Receive Date: 20201009
  Receipt Date: 20201009
  Transmission Date: 20210114
  Serious: No
  Sender: FDA-Public Use
  Company Number: None

PATIENT
  Age: 65 Year
  Sex: Male

DRUGS (1)
  1. ACTHAR [Suspect]
     Active Substance: CORTICOTROPIN
     Dosage: ?          OTHER DOSE:80 UNITS;?
     Route: 058
     Dates: start: 202007

REACTIONS (2)
  - Dehydration [None]
  - Gastric infection [None]

NARRATIVE: CASE EVENT DATE: 20200930
